FAERS Safety Report 6294112-8 (Version None)
Quarter: 2009Q3

REPORT INFORMATION
  Report Type: 
  Country: None (occurrence: None)
  Receive Date: 20090803
  Receipt Date: 20081120
  Transmission Date: 20100115
  Serious: No
  Sender: FDA-Public Use
  Company Number: A0757608A

PATIENT
  Age: 30 Year
  Sex: Male

DRUGS (1)
  1. NICORETTE (MINT) [Suspect]
     Dates: start: 20081112, end: 20081119

REACTIONS (3)
  - ANXIETY [None]
  - FEELING ABNORMAL [None]
  - PALPITATIONS [None]
